FAERS Safety Report 6219524-X (Version None)
Quarter: 2009Q2

REPORT INFORMATION
  Report Type: 
  Country: None (occurrence: None)
  Receive Date: 20090609
  Receipt Date: 20090528
  Transmission Date: 20091009
  Serious: Yes (Other)
  Sender: FDA-Public Use
  Company Number: US-PFIZER INC-2009220636

PATIENT
  Sex: Female

DRUGS (1)
  1. LINEZOLID [Suspect]
     Indication: SKIN INFECTION
     Dates: start: 20070901, end: 20070101

REACTIONS (5)
  - BLOOD DISORDER [None]
  - DIZZINESS [None]
  - LEUKOPENIA [None]
  - MYELODYSPLASTIC SYNDROME [None]
  - NEUTROPENIA [None]
